FAERS Safety Report 21514641 (Version 3)
Quarter: 2022Q4

REPORT INFORMATION
  Report Type: Spontaneous
  Country: US (occurrence: US)
  Receive Date: 20221027
  Receipt Date: 20221229
  Transmission Date: 20230113
  Serious: Yes (Hospitalization)
  Sender: FDA-Public Use
  Company Number: US-KARYOPHARM-2022KPT001253

PATIENT

DRUGS (17)
  1. XPOVIO [Suspect]
     Active Substance: SELINEXOR
     Indication: Plasma cell myeloma
     Dosage: 80 MG, WEEKLY
     Route: 048
     Dates: start: 20221006, end: 202211
  2. ZOVIRAX [Concomitant]
     Active Substance: ACYCLOVIR
  3. ASPIRIN [Concomitant]
     Active Substance: ASPIRIN
  4. PENLAC [Concomitant]
     Active Substance: CICLOPIROX
  5. TOPICORT [Concomitant]
     Active Substance: DESOXIMETASONE
  6. DEXAMETHASONE [Concomitant]
     Active Substance: DEXAMETHASONE
  7. NOVOLOG [Concomitant]
     Active Substance: INSULIN ASPART
  8. LIDOCAINE [Concomitant]
     Active Substance: LIDOCAINE
  9. LOPERAMIDE [Concomitant]
     Active Substance: LOPERAMIDE
  10. ROBAXIN [Concomitant]
     Active Substance: METHOCARBAMOL
  11. ELIQUIS [Concomitant]
     Active Substance: APIXABAN
  12. PAMIDRONATE [Concomitant]
     Active Substance: PAMIDRONATE DISODIUM
  13. TRESIBA [Concomitant]
     Active Substance: INSULIN DEGLUDEC
  14. METRONIDAZOLE [Concomitant]
     Active Substance: METRONIDAZOLE
  15. ZOFRAN [Concomitant]
     Active Substance: ONDANSETRON HYDROCHLORIDE
  16. PROCHLORPERAZINE [Concomitant]
     Active Substance: PROCHLORPERAZINE
  17. KLOR-CON [Concomitant]
     Active Substance: POTASSIUM CHLORIDE

REACTIONS (3)
  - Confusional state [Unknown]
  - Nausea [Unknown]
  - Vomiting [Unknown]

NARRATIVE: CASE EVENT DATE: 20221016
